FAERS Safety Report 6588787-3 (Version None)
Quarter: 2010Q1

REPORT INFORMATION
  Report Type: 
  Country: None (occurrence: None)
  Receive Date: 20100218
  Receipt Date: 20100209
  Transmission Date: 20100710
  Serious: Yes (Other)
  Sender: FDA-Public Use
  Company Number: US-JNJFOC-20100205414

PATIENT
  Sex: Female
  Weight: 61.24 kg

DRUGS (6)
  1. DURAGESIC-100 [Suspect]
     Indication: PAIN
     Route: 062
  2. DURAGESIC-100 [Suspect]
     Route: 062
  3. NEURONTIN [Concomitant]
     Indication: PAIN
     Route: 048
  4. NEURONTIN [Concomitant]
     Indication: CONVULSION
     Route: 048
  5. DILAUDID [Concomitant]
     Indication: BREAKTHROUGH PAIN
     Dosage: AS NEEDED
     Route: 048
  6. MECLIZINE [Concomitant]
     Indication: NAUSEA
     Dosage: AS NEEDED
     Route: 048

REACTIONS (6)
  - DRUG EFFECT DECREASED [None]
  - DRUG EFFECT INCREASED [None]
  - MULTIPLE SCLEROSIS [None]
  - NAUSEA [None]
  - TREATMENT NONCOMPLIANCE [None]
  - VOMITING [None]
